FAERS Safety Report 13511065 (Version 3)
Quarter: 2018Q1

REPORT INFORMATION
  Report Type: Spontaneous
  Country: HR (occurrence: HR)
  Receive Date: 20170503
  Receipt Date: 20180131
  Transmission Date: 20180508
  Serious: Yes (Hospitalization, Other)
  Sender: FDA-Public Use
  Company Number: PHHY2017HR065154

PATIENT
  Age: 72 Year
  Sex: Female

DRUGS (2)
  1. GLIVEC [Suspect]
     Active Substance: IMATINIB MESYLATE
     Indication: CHRONIC MYELOID LEUKAEMIA
     Dosage: 400 MG, QD
     Route: 065
     Dates: start: 201202
  2. GLIVEC [Suspect]
     Active Substance: IMATINIB MESYLATE
     Dosage: 300 MG, QD
     Route: 065

REACTIONS (15)
  - Second primary malignancy [Unknown]
  - Oedema [Recovering/Resolving]
  - Abdominal pain [Recovered/Resolved]
  - Abdominal distension [Recovered/Resolved]
  - Pericardial effusion [Recovered/Resolved]
  - Pleural effusion [Recovering/Resolving]
  - Face oedema [Recovered/Resolved]
  - Pancytopenia [Recovering/Resolving]
  - Neuroendocrine tumour [Unknown]
  - Venous thrombosis [Unknown]
  - Ileus [Recovering/Resolving]
  - Metastasis [Recovering/Resolving]
  - Ascites [Recovering/Resolving]
  - Nausea [Recovered/Resolved]
  - Dyspnoea [Recovered/Resolved]

NARRATIVE: CASE EVENT DATE: 201405
